FAERS Safety Report 9193434 (Version 7)
Quarter: 2013Q3

REPORT INFORMATION
  Report Type: Spontaneous
  Country: DK (occurrence: DK)
  Receive Date: 20130327
  Receipt Date: 20130925
  Transmission Date: 20140515
  Serious: Yes (Other)
  Sender: FDA-Public Use
  Company Number: DK-PFIZER INC-2013096001

PATIENT
  Age: 46 Year
  Sex: Female

DRUGS (7)
  1. LYRICA [Suspect]
     Indication: ANXIETY
     Dosage: 150 MG, 1X/DAY
     Route: 048
     Dates: start: 20110310
  2. LYRICA [Suspect]
     Indication: DEPRESSION
  3. LYRICA [Suspect]
     Indication: BIPOLAR DISORDER
  4. SEROQUEL [Suspect]
     Indication: BIPOLAR DISORDER
     Dosage: 200 MG, DAILY AT NIGHT
     Route: 048
     Dates: start: 20100614
  5. LITAREX [Suspect]
     Indication: BIPOLAR DISORDER
     Dosage: 6 MMOL, 3X/DAY
     Route: 048
     Dates: start: 20120304
  6. LAMICTAL [Suspect]
     Indication: BIPOLAR DISORDER
     Dosage: 50 MG, 1X/DAY
     Route: 048
     Dates: start: 20100407
  7. LAMICTAL [Suspect]
     Dosage: 200 MG, DAILY
     Route: 048

REACTIONS (5)
  - Polyneuropathy [Recovering/Resolving]
  - Paraesthesia [Recovering/Resolving]
  - Pain in extremity [Recovering/Resolving]
  - Skin burning sensation [Recovering/Resolving]
  - Sleep disorder [Not Recovered/Not Resolved]
